FAERS Safety Report 4630187-7 (Version None)
Quarter: 2005Q2

REPORT INFORMATION
  Report Type: 
  Country: None (occurrence: None)
  Receive Date: 20050406
  Receipt Date: 20050318
  Transmission Date: 20051028
  Serious: Yes (Hospitalization)
  Sender: FDA-Public Use
  Company Number: ES-SANOFI-SYNTHELABO-F01200500440

PATIENT
  Age: 75 Year
  Sex: Female

DRUGS (2)
  1. OXALIPLATIN - SOLUTION - 85 MG/M2 [Suspect]
     Indication: COLORECTAL CANCER
     Dosage: 85 MG/M2 Q2W INTRAVENOUS NOS
     Route: 042
     Dates: start: 20050308, end: 20050308
  2. FLUOROURACIL - SOLUTION - 3000 MG/M2 [Suspect]
     Dosage: 3000 MG/M2 IN 48 HOURS INFUSION, Q2W INTRAVENOUS NOS
     Route: 042
     Dates: start: 20050308, end: 20050309

REACTIONS (3)
  - ACUTE MYOCARDIAL INFARCTION [None]
  - ANGINA PECTORIS [None]
  - ECHOCARDIOGRAM ABNORMAL [None]
